FAERS Safety Report 8326275-4 (Version None)
Quarter: 2012Q2

REPORT INFORMATION
  Report Type: 
  Country: None (occurrence: None)
  Receive Date: 20120501
  Receipt Date: 20120418
  Transmission Date: 20120825
  Serious: Yes (Death)
  Sender: FDA-Public Use
  Company Number: US-MYLANLABS-2010S1000435

PATIENT
  Age: 45 Year
  Sex: Male
  Weight: 144.24 kg

DRUGS (10)
  1. CLONAZEPAM [Concomitant]
  2. LISINOPRIL [Concomitant]
  3. LIPITOR [Concomitant]
  4. SYNTHROID [Concomitant]
  5. VERAPAMIL [Concomitant]
  6. IBUPROFEN [Concomitant]
  7. FENTANYL-100 [Suspect]
     Indication: BACK PAIN
     Dosage: CHANGE EVERY 3 DAYS
     Route: 062
     Dates: start: 20040101, end: 20090910
  8. CYMBALTA [Concomitant]
  9. ZYPREXA [Concomitant]
  10. BUSPIRONE HCL [Concomitant]

REACTIONS (2)
  - TOXICITY TO VARIOUS AGENTS [None]
  - OVERDOSE [None]
